FAERS Safety Report 5212595-9 (Version None)
Quarter: 2006Q4

REPORT INFORMATION
  Report Type: 
  Country: None (occurrence: None)
  Receive Date: 20061102
  Receipt Date: 20050927
  Transmission Date: 20070319
  Serious: Yes (Other)
  Sender: FDA-Public Use
  Company Number: 20930

PATIENT
  Age: 65 Year
  Sex: Female
  Weight: 73.9363 kg

DRUGS (13)
  1. METHOTREXATE [Suspect]
     Indication: RHEUMATOID ARTHRITIS
     Dosage: 0.6ML/SQ/1XWK
     Route: 058
  2. DIOVAN HCT [Concomitant]
  3. CARDIZEM LA [Concomitant]
  4. PRAVACHOL [Concomitant]
  5. ZETIA [Concomitant]
  6. PREDNISONE [Concomitant]
  7. SINGULAIR [Concomitant]
  8. ADVAIR INHALER [Concomitant]
  9. ESTROGENIC SUBSTANCE [Concomitant]
  10. ZOLOFT [Concomitant]
  11. ASPIRIN [Concomitant]
  12. NASONEX [Concomitant]
  13. MULTI-VITAMINS [Concomitant]

REACTIONS (1)
  - INJECTION SITE REACTION [None]
